FAERS Safety Report 11906224 (Version 1)
Quarter: 2016Q1

REPORT INFORMATION
  Report Type: Spontaneous
  Country: US (occurrence: None)
  Receive Date: 20160108
  Receipt Date: 20160108
  Transmission Date: 20160526
  Serious: Yes (Hospitalization)
  Sender: FDA-Public Use
  Company Number: None

PATIENT
  Age: 32 Year
  Sex: Female
  Weight: 80.74 kg

DRUGS (9)
  1. NIGHT QUIL [Concomitant]
  2. DAY QUIL [Concomitant]
  3. HAIR SKIN AND NAIL VITAMINS WITH BIOTIN [Concomitant]
  4. MULTIVITAMIN [Concomitant]
     Active Substance: VITAMINS
  5. ACETAMINOPHEN. [Concomitant]
     Active Substance: ACETAMINOPHEN
  6. VITAMIN B [Concomitant]
     Active Substance: VITAMIN B
  7. TYLENOL [Concomitant]
     Active Substance: ACETAMINOPHEN
  8. FERROUS SULFATE [Concomitant]
     Active Substance: FERROUS SULFATE\FERROUS SULFATE, DRIED
  9. FLAGYL(GENERIC) 500MG WALGREENS [Suspect]
     Active Substance: METRONIDAZOLE HYDROCHLORIDE
     Route: 048

REACTIONS (6)
  - Thermal burn [None]
  - Diarrhoea [None]
  - Pyrexia [None]
  - Gingival bleeding [None]
  - Faeces hard [None]
  - Dyskinesia [None]

NARRATIVE: CASE EVENT DATE: 20151119
